FAERS Safety Report 20660724 (Version 1)
Quarter: 2022Q1

REPORT INFORMATION
  Report Type: Spontaneous
  Country: US (occurrence: US)
  Receive Date: 20220331
  Receipt Date: 20220331
  Transmission Date: 20220424
  Serious: No
  Sender: FDA-Public Use
  Company Number: US-PFIZER INC-2021907436

PATIENT
  Age: 62 Year
  Sex: Female
  Weight: 51.701 kg

DRUGS (8)
  1. IBRANCE [Suspect]
     Active Substance: PALBOCICLIB
     Indication: Breast cancer female
     Dosage: 125 MG TABLETS 21^S 1X/DAY
     Route: 048
     Dates: start: 20210701
  2. ALEVE [Concomitant]
     Active Substance: NAPROXEN SODIUM
  3. ALLEGRA ALLERGY [Concomitant]
     Active Substance: FEXOFENADINE HYDROCHLORIDE
  4. FASLODEX [Concomitant]
     Active Substance: FULVESTRANT
  5. IRON [Concomitant]
     Active Substance: IRON
  6. UBRELVY [Concomitant]
     Active Substance: UBROGEPANT
  7. VITAMIN D3 [Concomitant]
     Active Substance: CHOLECALCIFEROL
  8. CALCIUM CARBONATE [Concomitant]
     Active Substance: CALCIUM CARBONATE

REACTIONS (4)
  - Nausea [Unknown]
  - Fatigue [Unknown]
  - Dizziness [Unknown]
  - Abdominal discomfort [Unknown]
